FAERS Safety Report 6563735-0 (Version None)
Quarter: 2010Q1

REPORT INFORMATION
  Report Type: 
  Country: None (occurrence: None)
  Receive Date: 20100130
  Receipt Date: 20091228
  Transmission Date: 20100710
  Serious: No
  Sender: FDA-Public Use
  Company Number: US-ABBOTT-09P-163-0616380-00

PATIENT
  Sex: Female
  Weight: 65.83 kg

DRUGS (13)
  1. HUMIRA [Suspect]
     Indication: COLITIS ULCERATIVE
     Dosage: ONCE, LOADING DOSE - WILL BE DOING 40MG EOW
     Dates: start: 20091224, end: 20091224
  2. HUMIRA [Suspect]
  3. METHOTREXATE [Concomitant]
     Indication: DRUG USE FOR UNKNOWN INDICATION
     Route: 048
  4. METHOTREXATE [Concomitant]
     Route: 050
  5. PRAVACHOL [Concomitant]
     Indication: BLOOD CHOLESTEROL INCREASED
  6. NORVASC [Concomitant]
     Indication: DRUG USE FOR UNKNOWN INDICATION
  7. FOLIC ACID [Concomitant]
     Indication: DRUG USE FOR UNKNOWN INDICATION
  8. LEXAPRO [Concomitant]
     Indication: DRUG USE FOR UNKNOWN INDICATION
  9. XANAX [Concomitant]
     Indication: DRUG USE FOR UNKNOWN INDICATION
  10. FOSAMAX [Concomitant]
     Indication: DRUG USE FOR UNKNOWN INDICATION
  11. VITAMIN D [Concomitant]
     Indication: DRUG USE FOR UNKNOWN INDICATION
  12. CALCIUM [Concomitant]
     Indication: DRUG USE FOR UNKNOWN INDICATION
  13. LIALDA [Concomitant]
     Indication: DRUG USE FOR UNKNOWN INDICATION

REACTIONS (4)
  - DEPRESSED MOOD [None]
  - EMOTIONAL DISTRESS [None]
  - MOOD ALTERED [None]
  - NIGHTMARE [None]
